FAERS Safety Report 7601862-7 (Version None)
Quarter: 2011Q3

REPORT INFORMATION
  Report Type: 
  Country: None (occurrence: None)
  Receive Date: 20110711
  Receipt Date: 20110630
  Transmission Date: 20111222
  Serious: Yes (Hospitalization)
  Sender: FDA-Public Use
  Company Number: US-VERTEX PHARMACEUTICALS INC.-AE-2011-000351

PATIENT
  Sex: Female
  Weight: 87.168 kg

DRUGS (8)
  1. VX-950 [Suspect]
     Indication: HEPATITIS C
     Route: 048
     Dates: start: 20110415, end: 20110613
  2. RIBAVIRIN [Suspect]
     Indication: HEPATITIS C
     Route: 048
     Dates: start: 20110415, end: 20110618
  3. PEGINTERFERON ALFA-2A [Suspect]
     Indication: HEPATITIS C
     Route: 058
     Dates: start: 20110415, end: 20110618
  4. ATIVAN [Concomitant]
     Dates: start: 20110512
  5. OMEPRAZOLE [Concomitant]
  6. HYDROXYZINE [Concomitant]
  7. CITALOPRAM [Concomitant]
     Indication: ANXIETY
     Dates: start: 20110408
  8. CLOBETASOL PROPIONATE [Concomitant]
     Route: 061
     Dates: start: 20110607

REACTIONS (2)
  - SYSTEMIC INFLAMMATORY RESPONSE SYNDROME [None]
  - DRUG ERUPTION [None]
